FAERS Safety Report 18916392 (Version 1)
Quarter: 2021Q1

REPORT INFORMATION
  Report Type: Spontaneous
  Country: DE (occurrence: DE)
  Receive Date: 20210219
  Receipt Date: 20210219
  Transmission Date: 20210420
  Serious: Yes (Other)
  Sender: FDA-Public Use
  Company Number: DE-PFIZER INC-2021140660

PATIENT
  Age: 19 Year
  Sex: Female

DRUGS (1)
  1. SAYANA [Suspect]
     Active Substance: MEDROXYPROGESTERONE
     Indication: CONTRACEPTION
     Dosage: 1 UNKNOWN UNIT, EVERY 3 MONTHS
     Dates: start: 20190601, end: 20200701

REACTIONS (2)
  - Injection site scar [Not Recovered/Not Resolved]
  - Injection site discolouration [Not Recovered/Not Resolved]
